FAERS Safety Report 21618188 (Version 3)
Quarter: 2022Q4

REPORT INFORMATION
  Report Type: Spontaneous
  Country: US (occurrence: US)
  Receive Date: 20221119
  Receipt Date: 20221130
  Transmission Date: 20230112
  Serious: Yes (Hospitalization, Other)
  Sender: FDA-Public Use
  Company Number: US-UNITED THERAPEUTICS-UNT-2022-027512

PATIENT
  Age: 44 Year
  Sex: Female
  Weight: 67.12 kg

DRUGS (8)
  1. REMODULIN [Suspect]
     Active Substance: TREPROSTINIL
     Indication: Pulmonary arterial hypertension
     Dosage: UNK, CONTINUING
     Route: 058
     Dates: start: 20220909, end: 2022
  2. REMODULIN [Suspect]
     Active Substance: TREPROSTINIL
     Dosage: 0.022 ?G/KG, CONTINUING (PHARMACY FILLED WITH 3 ML PER CASSETTE, PUMP RATE 35 MCL/HOUR)
     Route: 058
     Dates: start: 2022
  3. REMODULIN [Suspect]
     Active Substance: TREPROSTINIL
     Indication: Pulmonary arterial hypertension
     Dosage: 0.023 ?G/KG, CONTINUING (PHARMACY PRE-FILLED WITH 2 ML PER CASSETTE, PUMP RATE OF 18 MCL PER HOUR)
     Route: 058
     Dates: start: 2022
  4. REMODULIN [Suspect]
     Active Substance: TREPROSTINIL
     Dosage: UNK, CONTINUING
     Route: 058
     Dates: start: 2022
  5. REMODULIN [Suspect]
     Active Substance: TREPROSTINIL
     Dosage: 0.049 ?G/KG, CONTINUING (AT A RATE OF 39MCL/HR)
     Route: 058
     Dates: start: 20221118, end: 20221121
  6. REMODULIN [Suspect]
     Active Substance: TREPROSTINIL
     Dosage: 0.04 ?G/KG (PHARMACY PRE-FILLED WITH 3 ML PER CASSETTE; AT A RATE OF 32 MCL/HOUR), CONTINUING
     Route: 058
     Dates: start: 20221121
  7. SILDENAFIL [Concomitant]
     Active Substance: SILDENAFIL
     Indication: Product used for unknown indication
     Dosage: UNK
     Route: 065
  8. OPSUMIT [Concomitant]
     Active Substance: MACITENTAN
     Indication: Product used for unknown indication
     Dosage: UNK
     Route: 065

REACTIONS (7)
  - Syncope [Unknown]
  - Infusion site pain [Unknown]
  - Device infusion issue [Unknown]
  - Illness [Unknown]
  - Oxygen saturation abnormal [Unknown]
  - Incorrect drug administration rate [Recovered/Resolved]
  - Device programming error [Recovered/Resolved]

NARRATIVE: CASE EVENT DATE: 20221101
